FAERS Safety Report 5016623-5 (Version None)
Quarter: 2006Q2

REPORT INFORMATION
  Report Type: 
  Country: None (occurrence: None)
  Receive Date: 20060602
  Receipt Date: 20060529
  Transmission Date: 20061013
  Serious: Yes (Hospitalization)
  Sender: FDA-Public Use
  Company Number: PT-GLAXOSMITHKLINE-B0426028A

PATIENT
  Age: 4 Year
  Sex: Male

DRUGS (3)
  1. ZOREF [Suspect]
     Indication: UPPER RESPIRATORY TRACT INFECTION
     Dosage: 10ML PER DAY
     Route: 048
     Dates: start: 20060427, end: 20060429
  2. PARACETAMOL [Concomitant]
     Route: 048
  3. IBUPROFEN [Concomitant]
     Route: 048

REACTIONS (2)
  - OESOPHAGEAL PAIN [None]
  - VOMITING [None]
